FAERS Safety Report 5909656-5 (Version None)
Quarter: 2008Q4

REPORT INFORMATION
  Report Type: 
  Country: None (occurrence: None)
  Receive Date: 20081007
  Receipt Date: 20080930
  Transmission Date: 20090506
  Serious: Yes (Other)
  Sender: FDA-Public Use
  Company Number: PHHY2008JP21413

PATIENT
  Sex: Male
  Weight: 65 kg

DRUGS (7)
  1. LOCHOL [Suspect]
     Indication: HYPERCHOLESTEROLAEMIA
     Dosage: 30 MG, QD
     Route: 048
     Dates: start: 20080530, end: 20080910
  2. LIPITOR [Concomitant]
     Indication: HYPERCHOLESTEROLAEMIA
     Dosage: 10 MG, UNK
     Route: 048
     Dates: start: 20070901, end: 20080512
  3. TANATRIL [Concomitant]
     Indication: HYPERTENSION
     Dosage: 10 MG
     Route: 048
     Dates: start: 20070901
  4. BLOPRESS [Concomitant]
     Indication: HYPERTENSION
     Dosage: 8 MG, UNK
     Route: 048
  5. ARTIST [Concomitant]
     Indication: HYPERTENSION
     Dosage: 10 MG, UNK
     Route: 048
  6. ALDACTONE [Concomitant]
     Indication: HYPERTENSION
     Dosage: 75 MG, UNK
     Route: 048
     Dates: start: 20070901, end: 20080911
  7. LASIX [Concomitant]
     Indication: HYPERTENSION
     Dosage: 20 MG, UNK
     Route: 048
     Dates: start: 20070901, end: 20080911

REACTIONS (4)
  - BLOOD CREATINE PHOSPHOKINASE INCREASED [None]
  - DEHYDRATION [None]
  - MYOGLOBIN BLOOD INCREASED [None]
  - RHABDOMYOLYSIS [None]
